FAERS Safety Report 8113304 (Version 2)
Quarter: 2014Q3

REPORT INFORMATION
  Report Type: Spontaneous
  Country: US (occurrence: US)
  Receive Date: 20110830
  Receipt Date: 20140725
  Transmission Date: 20150326
  Serious: Yes (Hospitalization)
  Sender: FDA-Public Use
  Company Number: US-GLAXOSMITHKLINE-A0817547A

PATIENT
  Age: 60 Year
  Sex: Male

DRUGS (1)
  1. AVANDIA [Suspect]
     Active Substance: ROSIGLITAZONE MALEATE
     Indication: TYPE 2 DIABETES MELLITUS
     Dosage: 8MG PER DAY
     Route: 048
     Dates: start: 200206, end: 200512

REACTIONS (3)
  - Cardiac failure congestive [Not Recovered/Not Resolved]
  - Implantable defibrillator insertion [Unknown]
  - Angina pectoris [Unknown]

NARRATIVE: CASE EVENT DATE: 200510
